FAERS Safety Report 21541855 (Version 1)
Quarter: 2022Q4

REPORT INFORMATION
  Report Type: Spontaneous
  Country: US (occurrence: None)
  Receive Date: 20221101
  Receipt Date: 20221101
  Transmission Date: 20230113
  Serious: Yes (Hospitalization)
  Sender: FDA-Public Use
  Company Number: None

PATIENT

DRUGS (1)
  1. APIXABAN [Suspect]
     Active Substance: APIXABAN

REACTIONS (4)
  - Fall [None]
  - Dyspnoea [None]
  - Splenic haemorrhage [None]
  - Acute myocardial infarction [None]

NARRATIVE: CASE EVENT DATE: 20210309
